FAERS Safety Report 10157823 (Version 2)
Quarter: 2014Q2

REPORT INFORMATION
  Report Type: Other
  Country: GB (occurrence: GB)
  Receive Date: 20140507
  Receipt Date: 20140507
  Transmission Date: 20141212
  Serious: Yes (Hospitalization, Other)
  Sender: FDA-Public Use
  Company Number: GB-ASTELLAS-2014US004007

PATIENT
  Age: 28 Year
  Sex: 0

DRUGS (11)
  1. AMPHOTERICIN B [Suspect]
     Indication: PRODUCT USED FOR UNKNOWN INDICATION
     Route: 041
     Dates: start: 20120428, end: 20120523
  2. CIPROFLOXACIN [Suspect]
     Indication: NEUTROPENIC SEPSIS
     Route: 048
     Dates: start: 20120419, end: 20120503
  3. CIPROFLOXACIN [Suspect]
     Route: 048
     Dates: start: 20120514, end: 20120521
  4. CO-AMOXICLAV [Suspect]
     Indication: PRODUCT USED FOR UNKNOWN INDICATION
     Dosage: 500MG/125 MG, UNKNOWN FREQ.
     Route: 048
     Dates: start: 20120523, end: 20120530
  5. GENTAMICIN [Suspect]
     Indication: PRODUCT USED FOR UNKNOWN INDICATION
     Dosage: 80MG/2ML, UNKNOWN FREQ.
     Route: 041
     Dates: start: 20120523
  6. ITRACONAZOLE [Suspect]
     Indication: NEUTROPENIC SEPSIS
     Dosage: 50MG/5ML, UNKNOWN FREQ.
     Route: 065
     Dates: start: 20120419, end: 20120428
  7. MEROPENEM [Suspect]
     Indication: NEUTROPENIC SEPSIS
     Route: 041
     Dates: start: 20120506, end: 20120514
  8. PENTAMIDINE [Suspect]
     Indication: PRODUCT USED FOR UNKNOWN INDICATION
     Dosage: 300MG/5ML UNK, UNK
     Route: 045
     Dates: start: 20120503
  9. TAZOCIN [Suspect]
     Indication: PRODUCT USED FOR UNKNOWN INDICATION
     Route: 041
     Dates: start: 20120503, end: 20120506
  10. LANSOPRAZOLE [Concomitant]
     Indication: PRODUCT USED FOR UNKNOWN INDICATION
     Dosage: UNK UNK, UNKNOWN FREQ.
     Route: 065
  11. PANTOPRAZOLE [Concomitant]
     Indication: PRODUCT USED FOR UNKNOWN INDICATION
     Dosage: UNK UNK, UNKNOWN FREQ.
     Route: 065

REACTIONS (1)
  - Clostridium difficile infection [Unknown]
